FAERS Safety Report 8867542 (Version 1)
Quarter: 2012Q4

REPORT INFORMATION
  Report Type: 
  Country: US (occurrence: US)
  Receive Date: 20121025
  Receipt Date: 20121025
  Transmission Date: 20130627
  Serious: No
  Sender: FDA-Public Use
  Company Number: US-AMGEN-USASP2012017191

PATIENT
  Age: 52 Year
  Sex: Female
  Weight: 72.56 kg

DRUGS (5)
  1. ENBREL [Suspect]
     Indication: PRODUCT USED FOR UNKNOWN INDICATION
     Dosage: 50 mg, qwk
     Route: 058
  2. ZYRTEC ALLERGY [Concomitant]
     Dosage: 10 mg, UNK
  3. HYDROCHLOROTH [Concomitant]
     Dosage: 12.5 mg, UNK
  4. ROGAINE FOR MEN [Concomitant]
     Dosage: 2 %, UNK
  5. MULTI [Concomitant]
     Dosage: UNK

REACTIONS (2)
  - Sinusitis [Recovered/Resolved]
  - Influenza [Recovered/Resolved]
